FAERS Safety Report 6611289-2 (Version None)
Quarter: 2010Q1

REPORT INFORMATION
  Report Type: 
  Country: None (occurrence: None)
  Receive Date: 20100302
  Receipt Date: 20100302
  Transmission Date: 20100710
  Serious: Yes (Hospitalization)
  Sender: FDA-Public Use
  Company Number: None

PATIENT
  Age: 67 Year
  Sex: Male
  Weight: 117.7 kg

DRUGS (10)
  1. ASPIRIN [Suspect]
     Indication: CARDIOVASCULAR EVENT PROPHYLAXIS
     Dosage: 81 MG DAILY PO CHRONIC
     Route: 048
  2. FOLIC ACID [Concomitant]
  3. NAMENDA [Concomitant]
  4. ARICEPT [Concomitant]
  5. CITALOPRAM HYDROBROMIDE [Concomitant]
  6. RED YEAST RICE [Concomitant]
  7. OMEGA 3 PAK [Concomitant]
  8. VIT B12 [Concomitant]
  9. VIT C [Concomitant]
  10. VIT E [Concomitant]

REACTIONS (11)
  - DEHYDRATION [None]
  - DIZZINESS [None]
  - DYSPNOEA [None]
  - EPISTAXIS [None]
  - FAECES DISCOLOURED [None]
  - MUCOSAL DRYNESS [None]
  - NASAL SEPTUM DEVIATION [None]
  - OCCULT BLOOD POSITIVE [None]
  - ORTHOSTATIC HYPOTENSION [None]
  - PRESYNCOPE [None]
  - RENAL FAILURE ACUTE [None]
